FAERS Safety Report 8902535 (Version 1)
Quarter: 2012Q4

REPORT INFORMATION
  Report Type: 
  Country: US (occurrence: US)
  Receive Date: 20121112
  Receipt Date: 20121112
  Transmission Date: 20130627
  Serious: Yes (Other)
  Sender: FDA-Public Use
  Company Number: US-PFIZER INC-2012269051

PATIENT
  Sex: Female
  Weight: 68.03 kg

DRUGS (5)
  1. LYRICA [Suspect]
     Indication: PAIN
     Dosage: 50 mg, 3x/day
     Dates: start: 201209
  2. GABAPENTIN [Suspect]
     Dosage: UNK
  3. AMITRIPTYLINE [Suspect]
     Indication: NERVE PAIN
     Dosage: 5 or 10mg, daily at night
     Dates: start: 1990
  4. TIZANIDINE [Suspect]
     Dosage: UNK
     Dates: start: 2012
  5. INTERFERON BETA-1A [Concomitant]
     Indication: MULTIPLE SCLEROSIS
     Dosage: UNK

REACTIONS (5)
  - Drug intolerance [Not Recovered/Not Resolved]
  - Disturbance in attention [Not Recovered/Not Resolved]
  - Somnolence [Not Recovered/Not Resolved]
  - Fatigue [Not Recovered/Not Resolved]
  - Feeling abnormal [Not Recovered/Not Resolved]
